FAERS Safety Report 7308374-9 (Version None)
Quarter: 2011Q1

REPORT INFORMATION
  Report Type: 
  Country: None (occurrence: None)
  Receive Date: 20110223
  Receipt Date: 20110215
  Transmission Date: 20110831
  Serious: Yes (Other)
  Sender: FDA-Public Use
  Company Number: B0701629A

PATIENT
  Age: 81 Year
  Sex: Female

DRUGS (3)
  1. FOSFOMYCIN [Concomitant]
     Indication: FIBROMA
     Dosage: 4G TWICE PER DAY
     Route: 042
     Dates: start: 20080417
  2. CEFTAZIDIME [Suspect]
     Indication: FIBROMA
     Dosage: 3G TWICE PER DAY
     Route: 042
     Dates: start: 20080417
  3. ORNIDAZOLE [Concomitant]
     Indication: FIBROMA
     Dosage: 100ML PER DAY
     Route: 042
     Dates: start: 20080416

REACTIONS (2)
  - TREMOR [None]
  - ENCEPHALOPATHY [None]
